FAERS Safety Report 8095169-4 (Version None)
Quarter: 2012Q1

REPORT INFORMATION
  Report Type: 
  Country: None (occurrence: None)
  Receive Date: 20120129
  Receipt Date: 20111229
  Transmission Date: 20120608
  Serious: No
  Sender: FDA-Public Use
  Company Number: US-ABBOTT-12P-163-0888523-00

PATIENT
  Age: 49 Year
  Sex: Female

DRUGS (13)
  1. HUMIRA [Suspect]
     Indication: PSORIASIS
     Dosage: LOADING DOSE
     Dates: start: 20111224
  2. XANAX [Concomitant]
     Indication: PAIN
     Dosage: UP TO 3 TIMES A DAY
     Route: 048
  3. FISH OIL [Concomitant]
     Indication: CARDIAC DISORDER
     Dosage: DAILY
     Route: 048
  4. MAGNESIUM [Concomitant]
     Indication: VITAMIN SUPPLEMENTATION
     Route: 048
  5. JANUMET [Concomitant]
     Indication: BLOOD GLUCOSE ABNORMAL
     Dosage: DAILY
     Route: 048
  6. AMLODIPINE [Concomitant]
     Indication: CARDIAC DISORDER
     Dosage: DAILY
     Route: 048
  7. LISINOPRIL [Concomitant]
     Indication: BLOOD PRESSURE
     Dosage: DAILY
     Route: 048
  8. OMEPRAZOLE [Concomitant]
     Indication: GASTRIC DISORDER
     Dosage: DAILY
     Route: 048
  9. TRAMADOL HCL [Concomitant]
     Indication: PAIN
     Route: 048
  10. VICODIN [Concomitant]
     Indication: PAIN
     Route: 048
  11. TRICORE [Concomitant]
     Indication: CARDIAC DISORDER
  12. METOPROLOL TARTRATE [Concomitant]
     Indication: CARDIAC DISORDER
     Route: 048
  13. MULTI-VITAMINS [Concomitant]
     Indication: VITAMIN SUPPLEMENTATION
     Route: 048

REACTIONS (2)
  - SINUS DISORDER [None]
  - INJECTION SITE PAIN [None]
